FAERS Safety Report 10944589 (Version 1)
Quarter: 2015Q1

REPORT INFORMATION
  Report Type: Spontaneous
  Country: BE (occurrence: None)
  Receive Date: 20150318
  Receipt Date: 20150318
  Transmission Date: 20150721
  Serious: Yes (Other)
  Sender: FDA-Public Use
  Company Number: 2015EDG00012

PATIENT
  Age: 11 Year
  Sex: Male
  Weight: 45 kg

DRUGS (2)
  1. FLUOXETINE (FLUOXETINE) UNKNOWN [Suspect]
     Active Substance: FLUOXETINE HYDROCHLORIDE
     Indication: AFFECTIVE DISORDER
     Dosage: 1X/DAY
  2. FLUOXETINE (FLUOXETINE) UNKNOWN [Suspect]
     Active Substance: FLUOXETINE HYDROCHLORIDE
     Indication: ANXIETY
     Dosage: 1X/DAY

REACTIONS (4)
  - Serotonin syndrome [None]
  - Delirium [None]
  - Petit mal epilepsy [None]
  - Balance disorder [None]
